FAERS Safety Report 18163835 (Version 1)
Quarter: 2020Q3

REPORT INFORMATION
  Report Type: Spontaneous
  Country: US (occurrence: US)
  Receive Date: 20200818
  Receipt Date: 20200818
  Transmission Date: 20201103
  Serious: No
  Sender: FDA-Public Use
  Company Number: US-OTSUKA-2018_009038

PATIENT
  Sex: Male

DRUGS (5)
  1. RISPERDAL [Concomitant]
     Active Substance: RISPERIDONE
     Indication: PRODUCT USED FOR UNKNOWN INDICATION
     Dosage: UNK
     Route: 065
  2. ARIPIPRAZOLE. [Suspect]
     Active Substance: ARIPIPRAZOLE
     Indication: OBSESSIVE-COMPULSIVE DISORDER
     Dosage: UNK
     Route: 065
  3. ABILIFY [Suspect]
     Active Substance: ARIPIPRAZOLE
     Dosage: UNK
     Route: 065
  4. LEXAPRO [Concomitant]
     Active Substance: ESCITALOPRAM OXALATE
     Indication: PRODUCT USED FOR UNKNOWN INDICATION
     Dosage: UNK
     Route: 065
  5. ABILIFY [Suspect]
     Active Substance: ARIPIPRAZOLE
     Indication: AUTISM SPECTRUM DISORDER
     Dosage: 15 MG, QD
     Route: 048

REACTIONS (8)
  - Adverse event [Recovered/Resolved]
  - Soliloquy [Recovered/Resolved]
  - Psychotic disorder [Recovered/Resolved]
  - Product use in unapproved indication [Recovered/Resolved]
  - Abnormal behaviour [Unknown]
  - Product substitution issue [Unknown]
  - Obsessive-compulsive disorder [Recovered/Resolved]
  - Drug ineffective [Unknown]
